FAERS Safety Report 9089288 (Version 2)
Quarter: 2013Q2

REPORT INFORMATION
  Report Type: Spontaneous
  Country: FR (occurrence: FR)
  Receive Date: 20130131
  Receipt Date: 20130417
  Transmission Date: 20140414
  Serious: Yes (Other)
  Sender: FDA-Public Use
  Company Number: PHHY2013FR007986

PATIENT
  Age: 88 Year
  Sex: Female

DRUGS (1)
  1. AMOXICILLIN SANDOZ [Suspect]
     Dosage: 2 DF, (TOTAL DOSE), AT 07.P.M
     Route: 048
     Dates: start: 20121219, end: 20121219

REACTIONS (11)
  - Hypotension [Recovered/Resolved]
  - Ear pain [Recovered/Resolved]
  - Hypothermia [Recovered/Resolved]
  - Urinary incontinence [Recovered/Resolved]
  - Heart rate decreased [Recovered/Resolved]
  - Vomiting [Recovered/Resolved]
  - Diarrhoea [Recovered/Resolved]
  - Erythema [Recovered/Resolved]
  - Anaphylactoid reaction [Recovered/Resolved]
  - Paraesthesia oral [Recovering/Resolving]
  - Tongue oedema [Recovered/Resolved]
